FAERS Safety Report 10025039 (Version 1)
Quarter: 2014Q1

REPORT INFORMATION
  Report Type: Spontaneous
  Country: JP (occurrence: JP)
  Receive Date: 20140320
  Receipt Date: 20140320
  Transmission Date: 20141002
  Serious: Yes (Hospitalization)
  Sender: FDA-Public Use
  Company Number: JP-SA-2014SA033636

PATIENT
  Age: 18 Year
  Sex: Female
  Weight: 37.2 kg

DRUGS (14)
  1. FLUDARA [Suspect]
     Indication: APLASTIC ANAEMIA
     Route: 042
     Dates: start: 20130524, end: 20130526
  2. THYMOGLOBULINE [Suspect]
     Indication: BONE MARROW CONDITIONING REGIMEN
     Route: 042
     Dates: start: 20130524, end: 20130527
  3. ALKERAN [Suspect]
     Indication: APLASTIC ANAEMIA
     Route: 065
     Dates: start: 20130525, end: 20130526
  4. METHOTREXATE [Suspect]
     Indication: PROPHYLAXIS AGAINST GRAFT VERSUS HOST DISEASE
     Route: 065
     Dates: start: 20130530, end: 20130609
  5. FUNGUARD [Suspect]
     Indication: ANTIFUNGAL PROPHYLAXIS
     Route: 065
     Dates: start: 20130519, end: 20130717
  6. BAKTAR [Concomitant]
     Indication: ANTIFUNGAL PROPHYLAXIS
     Dates: start: 20130524
  7. POLYMYXIN B SULFATE [Concomitant]
     Indication: PROPHYLAXIS
     Dates: start: 20130524, end: 20130828
  8. ACYCLOVIR [Concomitant]
     Indication: ANTIVIRAL PROPHYLAXIS
     Dates: start: 20130524, end: 20130828
  9. URSO [Concomitant]
     Indication: PROPHYLAXIS
     Dates: start: 20130524, end: 20130828
  10. ORGARAN [Concomitant]
     Indication: PROPHYLAXIS
     Dates: start: 20130521, end: 20130725
  11. TARGOCID [Concomitant]
     Indication: FEBRILE NEUTROPENIA
     Dates: start: 20130518, end: 20130531
  12. PROGRAF [Concomitant]
     Indication: PROPHYLAXIS AGAINST GRAFT VERSUS HOST DISEASE
     Dates: start: 20130528, end: 20130717
  13. MAXIPIME [Concomitant]
     Indication: INFECTION PROPHYLAXIS
     Dates: start: 20130530, end: 20130612
  14. FIRSTCIN [Concomitant]
     Indication: INFECTION PROPHYLAXIS
     Dates: start: 20130613, end: 20130626

REACTIONS (3)
  - Bone marrow failure [Recovered/Resolved]
  - Liver disorder [Recovered/Resolved]
  - Epstein-Barr virus infection [Recovered/Resolved]
